FAERS Safety Report 18552319 (Version 1)
Quarter: 2020Q4

REPORT INFORMATION
  Report Type: Spontaneous
  Country: HR (occurrence: HR)
  Receive Date: 20201127
  Receipt Date: 20201127
  Transmission Date: 20210114
  Serious: Yes (Other)
  Sender: FDA-Public Use
  Company Number: HR-TEVA-2020-HR-1852274

PATIENT
  Age: 26 Year
  Sex: Male
  Weight: 96 kg

DRUGS (2)
  1. CITRAM [Concomitant]
     Active Substance: ESCITALOPRAM OXALATE
     Indication: ACUTE PSYCHOSIS
     Dosage: 10 MG
     Route: 048
     Dates: start: 20191122
  2. OLANDIX [Suspect]
     Active Substance: OLANZAPINE
     Indication: ACUTE PSYCHOSIS
     Dosage: 5 MG
     Route: 048
     Dates: start: 20191210

REACTIONS (1)
  - Abnormal weight gain [Not Recovered/Not Resolved]

NARRATIVE: CASE EVENT DATE: 20200108
